FAERS Safety Report 15695614 (Version 1)
Quarter: 2018Q4

REPORT INFORMATION
  Report Type: Report from Study
  Country: BR (occurrence: BR)
  Receive Date: 20181206
  Receipt Date: 20181206
  Transmission Date: 20190205
  Serious: Yes (Death, Other)
  Sender: FDA-Public Use
  Company Number: BR-ROCHE-1936159

PATIENT
  Sex: Female

DRUGS (6)
  1. MIDAZOLAM [Concomitant]
     Active Substance: MIDAZOLAM HYDROCHLORIDE
     Indication: PRODUCT USED FOR UNKNOWN INDICATION
     Route: 065
  2. BEVACIZUMAB. [Suspect]
     Active Substance: BEVACIZUMAB
     Route: 065
     Dates: end: 20161212
  3. BEVACIZUMAB. [Suspect]
     Active Substance: BEVACIZUMAB
     Indication: CERVIX CANCER METASTATIC
     Route: 065
     Dates: end: 20161014
  4. CARBOPLATIN. [Suspect]
     Active Substance: CARBOPLATIN
     Indication: CERVIX CANCER METASTATIC
     Route: 065
     Dates: end: 20161014
  5. PACLITAXEL. [Suspect]
     Active Substance: PACLITAXEL
     Indication: CERVIX CANCER METASTATIC
     Route: 065
     Dates: end: 20161014
  6. CEFTRIAXONE. [Concomitant]
     Active Substance: CEFTRIAXONE
     Indication: PRODUCT USED FOR UNKNOWN INDICATION
     Route: 065

REACTIONS (6)
  - Haematuria [Fatal]
  - Upper gastrointestinal haemorrhage [Fatal]
  - Hypovolaemic shock [Fatal]
  - Gastric haemorrhage [Fatal]
  - Haematemesis [Unknown]
  - Sepsis [Unknown]

NARRATIVE: CASE EVENT DATE: 20161216
